FAERS Safety Report 7464417-3 (Version None)
Quarter: 2011Q2

REPORT INFORMATION
  Report Type: 
  Country: None (occurrence: None)
  Receive Date: 20110509
  Receipt Date: 20110503
  Transmission Date: 20111010
  Serious: Yes (Other)
  Sender: FDA-Public Use
  Company Number: US-PFIZER INC-2008014172

PATIENT
  Sex: Female
  Weight: 57.143 kg

DRUGS (6)
  1. CHANTIX [Suspect]
     Dosage: 1 MG, 2X/DAY
  2. CHANTIX [Suspect]
     Indication: SMOKING CESSATION THERAPY
     Dosage: 0.5 MG, 1X/DAY
     Route: 048
     Dates: start: 20071207, end: 20071231
  3. TOPAMAX [Concomitant]
     Indication: MIGRAINE PROPHYLAXIS
     Dosage: 50 MG, 2X/DAY
     Route: 048
  4. TRAZODONE HCL [Concomitant]
     Indication: DEPRESSION
     Dosage: 100 MG, DAILY
     Route: 048
     Dates: start: 19920101
  5. INDERAL LA [Concomitant]
     Indication: MIGRAINE PROPHYLAXIS
     Dosage: 160 MG, DAILY
     Route: 048
  6. EFFEXOR XR [Concomitant]
     Indication: DEPRESSION
     Dosage: 75 MG, DAILY
     Route: 048
     Dates: start: 19920101

REACTIONS (9)
  - SUICIDAL IDEATION [None]
  - NERVOUS SYSTEM DISORDER [None]
  - NIGHTMARE [None]
  - EMOTIONAL DISORDER [None]
  - INSOMNIA [None]
  - DEPRESSION [None]
  - DEPRESSED MOOD [None]
  - FEELING JITTERY [None]
  - ANXIETY [None]
